FAERS Safety Report 7410397-6 (Version None)
Quarter: 2011Q2

REPORT INFORMATION
  Report Type: 
  Country: None (occurrence: None)
  Receive Date: 20110412
  Receipt Date: 20110407
  Transmission Date: 20111010
  Serious: Yes (Other)
  Sender: FDA-Public Use
  Company Number: HR-MERCK-1104USA00980

PATIENT
  Age: 68 Year
  Sex: Male
  Weight: 70 kg

DRUGS (4)
  1. JANUVIA [Suspect]
     Indication: TYPE 2 DIABETES MELLITUS
     Route: 048
     Dates: start: 20100101
  2. GLUCOBAY [Concomitant]
     Route: 048
     Dates: start: 20040101
  3. AMARYL [Suspect]
     Indication: TYPE 2 DIABETES MELLITUS
     Route: 048
     Dates: start: 20040101
  4. PIRAMIL [Concomitant]
     Route: 048
     Dates: start: 20040101

REACTIONS (2)
  - POTENTIATING DRUG INTERACTION [None]
  - HYPOGLYCAEMIA [None]
